FAERS Safety Report 4295293-8 (Version None)
Quarter: 2004Q1

REPORT INFORMATION
  Report Type: 
  Country: None (occurrence: None)
  Receive Date: 20040216
  Receipt Date: 20030519
  Transmission Date: 20041129
  Serious: No
  Sender: FDA-Public Use
  Company Number: US-GLAXOSMITHKLINE-A0408892A

PATIENT
  Age: 52 Year
  Sex: Male
  Weight: 100 kg

DRUGS (3)
  1. LAMICTAL [Suspect]
     Indication: MAJOR DEPRESSION
     Dosage: 600MG PER DAY
     Route: 048
     Dates: start: 20030301, end: 20030515
  2. ATIVAN [Concomitant]
     Dosage: 2MG PER DAY
     Route: 048
  3. DURAGESIC [Concomitant]
     Indication: MIGRAINE
     Dosage: 25UGM VARIABLE DOSE
     Route: 062

REACTIONS (3)
  - ERYTHEMA [None]
  - PRURITUS [None]
  - RASH MACULO-PAPULAR [None]
